FAERS Safety Report 16228811 (Version 4)
Quarter: 2019Q3

REPORT INFORMATION
  Report Type: Spontaneous
  Country: US (occurrence: US)
  Receive Date: 20190423
  Receipt Date: 20190722
  Transmission Date: 20191004
  Serious: Yes (Other)
  Sender: FDA-Public Use
  Company Number: US-PFIZER INC-2019168477

PATIENT
  Age: 54 Year
  Sex: Female

DRUGS (14)
  1. METOPROLOL TARTRATE. [Suspect]
     Active Substance: METOPROLOL TARTRATE
     Dosage: 25 MG, UNK
     Dates: start: 20190314
  2. TRESIBA [Suspect]
     Active Substance: INSULIN DEGLUDEC
     Dosage: UNK [3 ML]
     Route: 058
     Dates: start: 20190315
  3. INFLECTRA [Suspect]
     Active Substance: INFLIXIMAB-DYYB
     Dosage: 400 MG, UNK
     Route: 042
  4. LYRICA [Suspect]
     Active Substance: PREGABALIN
     Indication: PAIN
     Dosage: 150 MG, 3X/DAY(3 TIMES A DAY FOR 30 DAYS)
     Route: 048
     Dates: start: 20190403
  5. AMITRIPTYLINE [Suspect]
     Active Substance: AMITRIPTYLINE
     Dosage: 50 MG, DAILY
     Route: 048
  6. METHOTREXATE SODIUM. [Suspect]
     Active Substance: METHOTREXATE SODIUM
     Dosage: 20 MG, DAILY(8 TABS OF METHOTREXATE DAILY)
  7. DICLOFENAC [Suspect]
     Active Substance: DICLOFENAC
     Dosage: UNK
     Route: 061
     Dates: start: 20190314
  8. CELECOXIB. [Suspect]
     Active Substance: CELECOXIB
     Dosage: 200 MG, DAILY (1 CAPSULE PER DAY)
     Route: 048
  9. FUROSEMIDE. [Suspect]
     Active Substance: FUROSEMIDE
     Dosage: 20 MG, UNK
     Dates: start: 20190319
  10. PANTOPRAZOLE [Suspect]
     Active Substance: PANTOPRAZOLE
     Dosage: 40 MG, UNK
     Route: 065
     Dates: start: 20190314
  11. HYDROCODONE/ACETAMINOPHEN [Suspect]
     Active Substance: ACETAMINOPHEN\HYDROCODONE
     Indication: PAIN
     Dosage: 1 DF, AS NEEDED (HYDROCODONE : ACETAMINOPHEN 10 MG/325MG (EVERY 6 HOURS AS NEEDED))
     Route: 048
  12. METFORMIN ER [Suspect]
     Active Substance: METFORMIN HYDROCHLORIDE
     Dosage: 500 MG, UNK
     Dates: start: 20190314
  13. INFLECTRA [Suspect]
     Active Substance: INFLIXIMAB-DYYB
     Indication: RHEUMATOID ARTHRITIS
     Dosage: 5 MG/KG, UNK (5 MG/KG, UNK (INFUSE 5 MG/KG OVER NO LESS THAN 2 HOUR(S) BY INTRAVENOUS ROUTE EVERY 8)
     Route: 042
     Dates: start: 20190227
  14. VENLAFAXINE ER [Suspect]
     Active Substance: VENLAFAXINE HYDROCHLORIDE
     Dosage: 225 MG, UNK
     Dates: start: 20190314

REACTIONS (23)
  - Headache [Unknown]
  - Palpitations [Unknown]
  - Chest pain [Unknown]
  - Feelings of worthlessness [Unknown]
  - Motor dysfunction [Unknown]
  - Wheezing [Unknown]
  - Suicidal ideation [Unknown]
  - Peripheral swelling [Unknown]
  - Hordeolum [Unknown]
  - Memory impairment [Unknown]
  - Paranasal sinus discomfort [Unknown]
  - Joint effusion [Unknown]
  - Pain in extremity [Unknown]
  - Poor quality sleep [Unknown]
  - Eyelid disorder [Unknown]
  - Joint range of motion decreased [Unknown]
  - Dyspnoea [Unknown]
  - Loss of personal independence in daily activities [Unknown]
  - Hyperkeratosis [Unknown]
  - Insomnia [Unknown]
  - Ear pain [Unknown]
  - Sinus pain [Unknown]
  - Arthralgia [Unknown]

NARRATIVE: CASE EVENT DATE: 20190321
